FAERS Safety Report 6240438-3 (Version None)
Quarter: 2009Q2

REPORT INFORMATION
  Report Type: 
  Country: None (occurrence: None)
  Receive Date: 20090623
  Receipt Date: 20090618
  Transmission Date: 20091009
  Serious: Yes (Death)
  Sender: FDA-Public Use
  Company Number: JP-NOVOPROD-288495

PATIENT
  Age: 76 Year
  Sex: Male

DRUGS (1)
  1. NOVOSEVEN [Suspect]
     Indication: FACTOR VIII DEFICIENCY
     Dosage: 4.8 MG, UNK
     Route: 042
     Dates: start: 20090308

REACTIONS (1)
  - INFECTION [None]
